FAERS Safety Report 8002743-X (Version None)
Quarter: 2011Q4

REPORT INFORMATION
  Report Type: 
  Country: None (occurrence: None)
  Receive Date: 20111219
  Receipt Date: 20111209
  Transmission Date: 20120403
  Serious: Yes (Other)
  Sender: FDA-Public Use
  Company Number: 2011MA017614

PATIENT
  Age: 38 Year
  Sex: Female

DRUGS (1)
  1. SERTRALINE HYDROCHLORIDE [Suspect]
     Dosage: 50 MG, QD, PO
     Route: 048

REACTIONS (2)
  - STILLBIRTH [None]
  - MATERNAL DRUGS AFFECTING FOETUS [None]
